FAERS Safety Report 22093095 (Version 1)
Quarter: 2023Q1

REPORT INFORMATION
  Report Type: Spontaneous
  Country: US (occurrence: None)
  Receive Date: 20230314
  Receipt Date: 20230314
  Transmission Date: 20230417
  Serious: Yes (Hospitalization)
  Sender: FDA-Public Use
  Company Number: None

PATIENT
  Age: 78 Year
  Sex: Male
  Weight: 95.71 kg

DRUGS (16)
  1. ABIRATERONE [Suspect]
     Active Substance: ABIRATERONE
     Indication: Prostate cancer
     Dosage: FREQUENCY : DAILY;?
     Route: 048
  2. ASPIRIN [Concomitant]
  3. ATORVASTATIN [Concomitant]
  4. BASAGLAR [Concomitant]
  5. CLOPIDOGREL [Concomitant]
  6. DIFLUCAN [Concomitant]
  7. FOLIC ACID [Concomitant]
  8. GLIPIZIDE [Concomitant]
  9. LOSARTAN [Concomitant]
  10. LUPRON DEPOT [Concomitant]
  11. METFORMIN [Concomitant]
  12. METOPROLOL [Concomitant]
  13. NOVOLOG [Concomitant]
  14. ONDANSETRON [Concomitant]
  15. PREDNISONE [Concomitant]
  16. VITAMIN D3 [Concomitant]

REACTIONS (1)
  - Hospitalisation [None]

NARRATIVE: CASE EVENT DATE: 20230313
